FAERS Safety Report 19752279 (Version 5)
Quarter: 2021Q4

REPORT INFORMATION
  Report Type: Report from Study
  Country: US (occurrence: US)
  Receive Date: 20210827
  Receipt Date: 20211210
  Transmission Date: 20220303
  Serious: Yes (Death)
  Sender: FDA-Public Use
  Company Number: US-ABBVIE-21K-163-4057052-00

PATIENT
  Age: 73 Year
  Sex: Female
  Weight: 50.8 kg

DRUGS (4)
  1. VENCLEXTA [Suspect]
     Active Substance: VENETOCLAX
     Indication: Acute leukaemia
     Dosage: TAKE 4 TABLETS BY MOUTH ONCE DAILY
     Route: 048
  2. ZELBORAF [Suspect]
     Active Substance: VEMURAFENIB
     Indication: Thyroid cancer
     Dosage: TAKE 2 TABLET TWICE A DAY
     Route: 048
  3. ZELBORAF [Suspect]
     Active Substance: VEMURAFENIB
     Indication: Papillary thyroid cancer
  4. ZELBORAF [Suspect]
     Active Substance: VEMURAFENIB
     Indication: Acute leukaemia

REACTIONS (3)
  - Death [Fatal]
  - Off label use [Unknown]
  - Off label use [Unknown]

NARRATIVE: CASE EVENT DATE: 20210828
